FAERS Safety Report 25433860 (Version 1)
Quarter: 2025Q2

REPORT INFORMATION
  Report Type: Spontaneous
  Country: US (occurrence: US)
  Receive Date: 20250613
  Receipt Date: 20250613
  Transmission Date: 20250717
  Serious: No
  Sender: EVOLUS, INC.
  Company Number: US-Evolus, Inc.-2025EV000307

PATIENT
  Age: 63 Year
  Sex: Female

DRUGS (1)
  1. HYALURONIC ACID\LIDOCAINE HYDROCHLORIDE [Suspect]
     Active Substance: HYALURONIC ACID\LIDOCAINE HYDROCHLORIDE
     Indication: Product used for unknown indication
     Dates: start: 20250429

REACTIONS (1)
  - Lip disorder [Unknown]

NARRATIVE: CASE EVENT DATE: 20250101
